FAERS Safety Report 9425717 (Version 1)
Quarter: 2013Q3

REPORT INFORMATION
  Report Type: Spontaneous
  Country: US (occurrence: US)
  Receive Date: 20130729
  Receipt Date: 20130729
  Transmission Date: 20140515
  Serious: No
  Sender: FDA-Public Use
  Company Number: US-BAXTER-2013BAX027781

PATIENT
  Sex: Female
  Weight: 84.09 kg

DRUGS (4)
  1. HEPARIN SODIUM IN 0.9% SODIUM CHLORIDE INJECTION [Suspect]
     Indication: PRODUCT USED FOR UNKNOWN INDICATION
     Route: 042
     Dates: start: 2006, end: 2006
  2. INDERAL LA [Concomitant]
     Indication: PRODUCT USED FOR UNKNOWN INDICATION
  3. PREMARIN [Concomitant]
     Indication: PRODUCT USED FOR UNKNOWN INDICATION
  4. VITAMIN B-12 [Concomitant]
     Indication: PRODUCT USED FOR UNKNOWN INDICATION
     Route: 042

REACTIONS (3)
  - Chest pain [Recovered/Resolved]
  - Infusion related reaction [Recovered/Resolved]
  - Cardiac enzymes increased [Unknown]
